FAERS Safety Report 9229916 (Version 1)
Quarter: 2013Q2

REPORT INFORMATION
  Report Type: Spontaneous
  Country: US (occurrence: None)
  Receive Date: 20130411
  Receipt Date: 20130411
  Transmission Date: 20140414
  Serious: Yes (Other)
  Sender: FDA-Public Use
  Company Number: ACO_35153_2013

PATIENT
  Age: 58 Year
  Sex: Female
  Weight: 49.9 kg

DRUGS (8)
  1. AMPYRA (DALFAMPRIDINE) TABLET, 10MG [Suspect]
     Indication: MULTIPLE SCLEROSIS
     Dosage: 10 MG, QD, ORAL
     Route: 048
     Dates: end: 20120505
  2. CYMBALTA (DULOXETINE HYDROCHLORIDE) [Concomitant]
  3. PROZAC (FLUOXETINE HYDROCHLORIDE) [Concomitant]
  4. VALIUM (BENZOIC ACID, BENZYL ALCOHOL, DIAZEPAM, ETHANOL, PROPYLENE GLYCOL, SODIUM BENZOATE) [Concomitant]
  5. LOPRESSOR (METOPROLOL TARTRATE) [Concomitant]
  6. VIMPAT (LACOSAMIDE) [Concomitant]
  7. BUMEX (BUMETANIDE) [Concomitant]
  8. AVONEX (INTERFERON BETA-1A) [Concomitant]

REACTIONS (3)
  - Coma [None]
  - Memory impairment [None]
  - Malaise [None]
